FAERS Safety Report 11352630 (Version 2)
Quarter: 2015Q4

REPORT INFORMATION
  Report Type: Spontaneous
  Country: US (occurrence: US)
  Receive Date: 20150807
  Receipt Date: 20151218
  Transmission Date: 20160304
  Serious: No
  Sender: FDA-Public Use
  Company Number: US-JNJFOC-20150100086

PATIENT
  Sex: Female
  Weight: 86.18 kg

DRUGS (4)
  1. WOMENS ROGAINE EXTRA STRENGTH [Suspect]
     Active Substance: MINOXIDIL
     Indication: HAIR GROWTH ABNORMAL
     Dosage: HALF A CAPFUL OR LESS
     Route: 061
  2. VITAMINE [Concomitant]
     Indication: HAIR GROWTH ABNORMAL
     Dosage: ONCE EVERY 3 WEEKS
     Route: 065
  3. ALL THERAPEUTIC PRODUCTS [Concomitant]
     Indication: HAIR GROWTH ABNORMAL
     Dosage: OCCASIONALLY, 4 MONTHS
     Route: 065
  4. WOMENS ROGAINE EXTRA STRENGTH [Suspect]
     Active Substance: MINOXIDIL
     Route: 061

REACTIONS (1)
  - Hair growth abnormal [Not Recovered/Not Resolved]
